FAERS Safety Report 7238064-2 (Version None)
Quarter: 2011Q1

REPORT INFORMATION
  Report Type: 
  Country: None (occurrence: None)
  Receive Date: 20110121
  Receipt Date: 20110112
  Transmission Date: 20110831
  Serious: Yes (Hospitalization)
  Sender: FDA-Public Use
  Company Number: B0688983A

PATIENT
  Sex: Female
  Weight: 53 kg

DRUGS (8)
  1. CORDARONE [Concomitant]
     Route: 065
  2. DIFFU K [Concomitant]
     Route: 065
  3. LASIX [Concomitant]
     Route: 065
  4. TENORMIN [Concomitant]
     Route: 065
  5. NOVONORM [Concomitant]
     Route: 065
  6. ARIXTRA [Suspect]
     Indication: DEEP VEIN THROMBOSIS
     Dosage: 5MG UNKNOWN
     Route: 058
     Dates: start: 20100701, end: 20101117
  7. LEVOTHYROX [Concomitant]
     Route: 065
  8. TEMESTA [Concomitant]
     Route: 065

REACTIONS (3)
  - HAEMATOMA [None]
  - INCORRECT DRUG ADMINISTRATION DURATION [None]
  - UNDERDOSE [None]
